FAERS Safety Report 6542285-1 (Version None)
Quarter: 2010Q1

REPORT INFORMATION
  Report Type: 
  Country: None (occurrence: None)
  Receive Date: 20100119
  Receipt Date: 20100112
  Transmission Date: 20100710
  Serious: Yes (Death, Other)
  Sender: FDA-Public Use
  Company Number: CN-PFIZER INC-2010003980

PATIENT
  Age: 91 Year
  Sex: Female

DRUGS (5)
  1. ZYVOX [Suspect]
     Indication: PNEUMONIA
     Dosage: 600 MG, 2X/DAY
  2. LEVOFLOXACIN [Concomitant]
     Indication: PNEUMONIA
  3. MEROPENEM [Concomitant]
     Indication: PNEUMONIA
  4. MOXIFLOXACIN [Concomitant]
     Indication: PNEUMONIA
  5. CEFEPIME [Concomitant]
     Indication: PNEUMONIA

REACTIONS (5)
  - ALANINE AMINOTRANSFERASE INCREASED [None]
  - ASPARTATE AMINOTRANSFERASE INCREASED [None]
  - DEATH [None]
  - PLATELET COUNT DECREASED [None]
  - WHITE BLOOD CELL COUNT DECREASED [None]
